FAERS Safety Report 9204555 (Version 2)
Quarter: 2013Q2

REPORT INFORMATION
  Report Type: Spontaneous
  Country: IT (occurrence: None)
  Receive Date: 20130329
  Receipt Date: 20130402
  Transmission Date: 20140414
  Serious: Yes (Other)
  Sender: FDA-Public Use
  Company Number: AUR-APL-2013-02665

PATIENT
  Age: 47 Year
  Sex: Male

DRUGS (1)
  1. MIRTAZAPINE [Suspect]
     Indication: INSOMNIA
     Dosage: 5 TABLETS OF 30 MG AT ONCE, ORAL
     Route: 048
     Dates: start: 20130312, end: 20130312

REACTIONS (3)
  - Sopor [None]
  - Slow speech [None]
  - Drug administration error [None]
